FAERS Safety Report 4336889-4 (Version None)
Quarter: 2004Q1

REPORT INFORMATION
  Report Type: 
  Country: None (occurrence: None)
  Receive Date: 20040329
  Receipt Date: 20040112
  Transmission Date: 20041129
  Serious: No
  Sender: FDA-Public Use
  Company Number: USA040156398

PATIENT
  Sex: Male

DRUGS (2)
  1. STRATTERA [Suspect]
     Indication: ATTENTION DEFICIT/HYPERACTIVITY DISORDER
     Dosage: 100 MG/DAY
     Dates: start: 20030901
  2. ACTOS [Concomitant]

REACTIONS (4)
  - ERECTILE DYSFUNCTION [None]
  - FATIGUE [None]
  - URTICARIA [None]
  - VIRAL INFECTION [None]
